FAERS Safety Report 13260530 (Version 1)
Quarter: 2017Q1

REPORT INFORMATION
  Report Type: Spontaneous
  Country: US (occurrence: US)
  Receive Date: 20170221
  Receipt Date: 20170221
  Transmission Date: 20170428
  Serious: Yes (Hospitalization)
  Sender: FDA-Public Use
  Company Number: None

PATIENT
  Sex: Male

DRUGS (1)
  1. STELARA [Suspect]
     Active Substance: USTEKINUMAB
     Indication: PSORIASIS
     Dosage: 90 MG Q12WKS SC
     Route: 058
     Dates: start: 20160908, end: 2017

REACTIONS (3)
  - Bacterial infection [None]
  - Immunosuppression [None]
  - Groin infection [None]

NARRATIVE: CASE EVENT DATE: 2017
